FAERS Safety Report 5534054-6 (Version None)
Quarter: 2007Q4

REPORT INFORMATION
  Report Type: 
  Country: None (occurrence: None)
  Receive Date: 20071129
  Receipt Date: 20071129
  Transmission Date: 20080405
  Serious: Yes (Hospitalization)
  Sender: FDA-Public Use
  Company Number: None

PATIENT
  Sex: Female
  Weight: 71.04 kg

DRUGS (1)
  1. TEMOZOLOMIDE [Suspect]
     Dosage: 5320 MG

REACTIONS (8)
  - CANDIDIASIS [None]
  - DISEASE PROGRESSION [None]
  - HERPES ZOSTER [None]
  - NAUSEA [None]
  - NEUTROPHIL COUNT DECREASED [None]
  - PLATELET COUNT DECREASED [None]
  - VOMITING [None]
  - WHITE BLOOD CELL COUNT DECREASED [None]
